FAERS Safety Report 22116162 (Version 2)
Quarter: 2023Q1

REPORT INFORMATION
  Report Type: Spontaneous
  Country: US (occurrence: US)
  Receive Date: 20230320
  Receipt Date: 20230321
  Transmission Date: 20230417
  Serious: No
  Sender: FDA-Public Use
  Company Number: US-SANOFI-01533499

PATIENT
  Age: 72 Year
  Sex: Female

DRUGS (1)
  1. LANTUS SOLOSTAR [Suspect]
     Active Substance: INSULIN GLARGINE
     Indication: Type 2 diabetes mellitus
     Dosage: 26-31 UNITS QD AND DRUG TREATMENT DURATION:260 UNITS + A NEW PEN

REACTIONS (2)
  - Blood glucose abnormal [Unknown]
  - Device issue [Unknown]

NARRATIVE: CASE EVENT DATE: 20230315
